FAERS Safety Report 5635551-5 (Version None)
Quarter: 2008Q1

REPORT INFORMATION
  Report Type: 
  Country: None (occurrence: None)
  Receive Date: 20080222
  Receipt Date: 20080218
  Transmission Date: 20080703
  Serious: Yes (Death, Hospitalization, Disabling)
  Sender: FDA-Public Use
  Company Number: DE-BAYER-200812504GPV

PATIENT
  Age: 81 Year
  Sex: Female
  Weight: 47 kg

DRUGS (6)
  1. NEXAVAR [Suspect]
     Indication: RENAL CELL CARCINOMA
     Dosage: TOTAL DAILY DOSE: 800 MG  UNIT DOSE: 200 MG
     Route: 048
     Dates: start: 20070628, end: 20071201
  2. VOLTAREN [Concomitant]
     Route: 065
  3. LANSOPRAZOLE [Concomitant]
     Route: 065
  4. CONCOR / BISOPROLOLFUMARAT [Concomitant]
     Route: 065
  5. RAMIPRIL [Concomitant]
     Route: 065
  6. IMODIUM / LOPERAMID [Concomitant]
     Route: 065
     Dates: start: 20070827, end: 20071217

REACTIONS (7)
  - ASTHENIA [None]
  - CACHEXIA [None]
  - DIARRHOEA [None]
  - GENERAL PHYSICAL HEALTH DETERIORATION [None]
  - NEOPLASM PROGRESSION [None]
  - PATHOLOGICAL FRACTURE [None]
  - WEIGHT DECREASED [None]
